FAERS Safety Report 5912979-7 (Version None)
Quarter: 2008Q4

REPORT INFORMATION
  Report Type: 
  Country: None (occurrence: None)
  Receive Date: 20081008
  Receipt Date: 20080929
  Transmission Date: 20090506
  Serious: Yes (Hospitalization)
  Sender: FDA-Public Use
  Company Number: DE-PFIZER INC-2008036214

PATIENT
  Sex: Male
  Weight: 91 kg

DRUGS (8)
  1. LONOLOX [Suspect]
     Indication: HYPERTENSION
     Route: 048
     Dates: start: 20080121, end: 20080616
  2. BLOPRESS [Concomitant]
     Route: 048
  3. ALLOPURINOL [Concomitant]
     Route: 048
  4. GLIMEPIRIDE [Concomitant]
     Route: 048
  5. METOBETA [Concomitant]
     Route: 048
  6. FUROSEMID [Concomitant]
     Route: 048
  7. HYDROCHLOROTHIAZIDE [Concomitant]
     Route: 048
     Dates: start: 20080110
  8. ASPIRIN [Concomitant]
     Route: 048
     Dates: start: 20080110

REACTIONS (3)
  - FACE OEDEMA [None]
  - HYPERTRICHOSIS [None]
  - RENAL FAILURE [None]
